FAERS Safety Report 19172407 (Version 1)
Quarter: 2021Q2

REPORT INFORMATION
  Report Type: Report from Study
  Country: RU (occurrence: RU)
  Receive Date: 20210423
  Receipt Date: 20210423
  Transmission Date: 20210717
  Serious: Yes (Death, Other)
  Sender: FDA-Public Use
  Company Number: RU-ADIENNEP-2021AD000267

PATIENT

DRUGS (5)
  1. ABATACEPT [Suspect]
     Active Substance: ABATACEPT
     Indication: PROPHYLAXIS AGAINST GRAFT VERSUS HOST DISEASE
     Dosage: 40MG/KG (10 MG/KG/DAILY ON DAYS 0, +7, +14 AND +28)
  2. THIOTEPA. [Suspect]
     Active Substance: THIOTEPA
     Indication: ALLOGENIC STEM CELL TRANSPLANTATION
     Dosage: 600 MG/M2 (300 MG/M2/D, ON D?6 AND ?5)
  3. BORTEZOMIB. [Suspect]
     Active Substance: BORTEZOMIB
     Indication: ALLOGENIC STEM CELL TRANSPLANTATION
     Dosage: 5.2MG/M2 (1.3 MG/M2/DAILY ON DAYS ?5, ?2, +2 AND +5)
  4. TOCILIZUMAB. [Suspect]
     Active Substance: TOCILIZUMAB
     Indication: PROPHYLAXIS AGAINST GRAFT VERSUS HOST DISEASE
     Dosage: 8MG/KG/DAILY ON DAY ?1
  5. FLUDARABINE [Suspect]
     Active Substance: FLUDARABINE PHOSPHATE
     Indication: ALLOGENIC STEM CELL TRANSPLANTATION
     Dosage: 150MG/M2 (30MG/M2/DAILY FROM DAY ?6 TO DAY ?2)

REACTIONS (7)
  - Adenoviral hepatitis [Unknown]
  - Cytomegalovirus viraemia [Unknown]
  - Sepsis [Fatal]
  - Pneumonia adenoviral [Unknown]
  - Enterococcal infection [Fatal]
  - Gastroenteritis adenovirus [Unknown]
  - Adenovirus infection [Unknown]
